FAERS Safety Report 19670444 (Version 1)
Quarter: 2021Q3

REPORT INFORMATION
  Report Type: Spontaneous
  Country: US (occurrence: US)
  Receive Date: 20210806
  Receipt Date: 20210806
  Transmission Date: 20211014
  Serious: Yes (Hospitalization)
  Sender: FDA-Public Use
  Company Number: US-SLATE RUN PHARMACEUTICALS-21US000624

PATIENT

DRUGS (7)
  1. CORTICOSTEROIDS [Concomitant]
     Active Substance: CORTICOSTEROID NOS
     Indication: MATERNAL EXPOSURE TIMING UNSPECIFIED
  2. OXYGEN. [Concomitant]
     Active Substance: OXYGEN
     Dosage: 2 TO 3 L/MIN
     Route: 045
  3. OXYGEN. [Concomitant]
     Active Substance: OXYGEN
     Dosage: 5 L/MIN
     Route: 045
  4. OXYGEN. [Concomitant]
     Active Substance: OXYGEN
     Indication: MATERNAL EXPOSURE TIMING UNSPECIFIED
     Dosage: 15 L/MIN
     Route: 045
  5. HEPARIN [Concomitant]
     Active Substance: HEPARIN SODIUM
     Indication: MATERNAL EXPOSURE TIMING UNSPECIFIED
  6. CEFTRIAXONE. [Concomitant]
     Active Substance: CEFTRIAXONE
     Indication: MATERNAL EXPOSURE TIMING UNSPECIFIED
  7. AZITHROMYCIN USP [Suspect]
     Active Substance: AZITHROMYCIN
     Indication: MATERNAL EXPOSURE TIMING UNSPECIFIED
     Dosage: UNK

REACTIONS (2)
  - Premature baby [Unknown]
  - Foetal exposure during pregnancy [Unknown]
